FAERS Safety Report 8154799-1 (Version None)
Quarter: 2012Q1

REPORT INFORMATION
  Report Type: 
  Country: None (occurrence: None)
  Receive Date: 20120221
  Receipt Date: 20120208
  Transmission Date: 20120608
  Serious: Yes (Hospitalization)
  Sender: FDA-Public Use
  Company Number: PHHY2012AR010841

PATIENT
  Age: 52 Year
  Sex: Male

DRUGS (1)
  1. SANDOSTATIN LAR [Suspect]
     Indication: METASTATIC CARCINOID TUMOUR
     Dosage: 30 MG, TWICE PER MONTH
     Dates: start: 20110801

REACTIONS (7)
  - DIARRHOEA [None]
  - INAPPROPRIATE SCHEDULE OF DRUG ADMINISTRATION [None]
  - DRY MOUTH [None]
  - DEHYDRATION [None]
  - OEDEMA PERIPHERAL [None]
  - NAUSEA [None]
  - VOMITING [None]
